FAERS Safety Report 8067644-X (Version None)
Quarter: 2012Q1

REPORT INFORMATION
  Report Type: 
  Country: None (occurrence: None)
  Receive Date: 20120124
  Receipt Date: 20120117
  Transmission Date: 20120608
  Serious: Yes (Death)
  Sender: FDA-Public Use
  Company Number: US-CELGENEUS-163-21880-12012027

PATIENT
  Sex: Male

DRUGS (13)
  1. OMEPRAZOLE MAGNESIUM [Concomitant]
     Dosage: 20 MILLIGRAM
     Route: 065
  2. PROCHLORPERAZINE MALEATE [Concomitant]
     Indication: NAUSEA
     Dosage: 10 MILLIGRAM
     Route: 048
  3. REVLIMID [Suspect]
     Indication: B-CELL LYMPHOMA
     Dosage: 10 MILLIGRAM
     Route: 048
     Dates: start: 20111020
  4. ACETAMINOPHEN [Concomitant]
     Dosage: 1000 MILLIGRAM
     Route: 065
  5. LASIX [Concomitant]
     Route: 065
  6. MILK OF MAGNESIA TAB [Concomitant]
     Indication: CONSTIPATION
     Route: 065
  7. ONDANSETRON [Concomitant]
     Dosage: 8 MILLIGRAM
     Route: 048
  8. LOPERAMIDE [Concomitant]
     Dosage: 2 MILLIGRAM
     Route: 048
  9. SODIUM BICARBONATE [Concomitant]
     Dosage: .25 TEASPOON
     Route: 048
  10. TRAMADOL HCL [Concomitant]
     Indication: PAIN
     Dosage: 50 MILLIGRAM
     Route: 048
  11. MAGNESIUM OXIDE [Concomitant]
     Dosage: 400 MILLIGRAM
     Route: 048
  12. FENTANYL [Concomitant]
     Dosage: 25 MICROGRAM
     Route: 062
  13. PROCHLORPERAZINE MALEATE [Concomitant]
     Indication: VOMITING

REACTIONS (1)
  - B-CELL LYMPHOMA [None]
